FAERS Safety Report 11622450 (Version 1)
Quarter: 2015Q4

REPORT INFORMATION
  Report Type: Spontaneous
  Country: US (occurrence: None)
  Receive Date: 20151009
  Receipt Date: 20151009
  Transmission Date: 20160304
  Serious: No
  Sender: FDA-Public Use
  Company Number: None

PATIENT
  Age: 59 Year
  Sex: Female

DRUGS (8)
  1. VENTOLIN [Concomitant]
     Active Substance: ALBUTEROL SULFATE
  2. XANAX [Concomitant]
     Active Substance: ALPRAZOLAM
  3. TUDROIZA PRESAIR [Concomitant]
  4. EXFORGE [Concomitant]
     Active Substance: AMLODIPINE BESYLATE\VALSARTAN
  5. OMNICEF [Suspect]
     Active Substance: CEFDINIR
     Indication: CHRONIC OBSTRUCTIVE PULMONARY DISEASE
     Dates: start: 20140429, end: 20140504
  6. NEXIUM [Concomitant]
     Active Substance: ESOMEPRAZOLE MAGNESIUM
  7. ZOLOFT [Suspect]
     Active Substance: SERTRALINE HYDROCHLORIDE
     Indication: ANXIETY
     Dates: start: 201401, end: 20140507
  8. HUMIRA [Concomitant]
     Active Substance: ADALIMUMAB

REACTIONS (5)
  - Drug-induced liver injury [None]
  - Nausea [None]
  - Fatigue [None]
  - Hepatic steatosis [None]
  - Abdominal pain [None]

NARRATIVE: CASE EVENT DATE: 20140506
